FAERS Safety Report 10567221 (Version 4)
Quarter: 2014Q4

REPORT INFORMATION
  Report Type: Report from Study
  Country: US (occurrence: US)
  Receive Date: 20141105
  Receipt Date: 20141113
  Transmission Date: 20150529
  Serious: Yes (Death, Hospitalization, Other)
  Sender: FDA-Public Use
  Company Number: PHHO2014US013516

PATIENT
  Age: 8 Year
  Sex: Female
  Weight: 22.7 kg

DRUGS (12)
  1. ANTIBIOTICS [Suspect]
     Active Substance: UNSPECIFIED INGREDIENT
  2. AMPHOJEL [Concomitant]
     Active Substance: ALUMINUM HYDROXIDE
     Indication: HYPERPHOSPHATAEMIA
     Dosage: 15 ML, TID
     Route: 048
     Dates: start: 20141001
  3. LEVOFLOXACIN. [Concomitant]
     Active Substance: LEVOFLOXACIN
     Indication: PROPHYLAXIS
     Dosage: 250 MG, QD
     Route: 048
     Dates: start: 20140915, end: 20141013
  4. FLUDARA [Suspect]
     Active Substance: FLUDARABINE PHOSPHATE
     Indication: CHEMOTHERAPY
  5. ZOFRAN [Concomitant]
     Active Substance: ONDANSETRON HYDROCHLORIDE
     Indication: PROPHYLAXIS OF NAUSEA AND VOMITING
     Dosage: 4 MG, PRN
     Route: 048
     Dates: start: 20140916
  6. CTL019 [Suspect]
     Active Substance: TISAGENLECLEUCEL-T
     Indication: ACUTE LYMPHOCYTIC LEUKAEMIA
     Route: 042
     Dates: start: 20141007
  7. FLUDARA [Suspect]
     Active Substance: FLUDARABINE PHOSPHATE
     Indication: ACUTE LYMPHOCYTIC LEUKAEMIA
     Dosage: 27.5 MG, QD (Q24HR)
     Route: 042
     Dates: start: 20140929, end: 20141002
  8. CYTOXAN [Suspect]
     Active Substance: CYCLOPHOSPHAMIDE
     Indication: ACUTE LYMPHOCYTIC LEUKAEMIA
     Dosage: UNK
     Route: 065
     Dates: start: 20140929, end: 20140930
  9. FLUCONAZOLE. [Concomitant]
     Active Substance: FLUCONAZOLE
     Indication: PROPHYLAXIS
     Dosage: 150 MG, QD
     Route: 048
     Dates: start: 20140825
  10. ACYCLOVIR. [Concomitant]
     Active Substance: ACYCLOVIR
     Indication: PROPHYLAXIS
     Dosage: 200 MG, BID
     Route: 048
     Dates: start: 20140130
  11. ALLOPURINOL. [Concomitant]
     Active Substance: ALLOPURINOL
     Indication: PROPHYLAXIS
     Dosage: 100 MG, BID
     Route: 048
     Dates: start: 20140925
  12. DAPSONE. [Concomitant]
     Active Substance: DAPSONE
     Indication: PROPHYLAXIS
     Dosage: 50 MG, QD
     Route: 048
     Dates: start: 20140708

REACTIONS (5)
  - Haemorrhagic stroke [Fatal]
  - Clostridium difficile infection [Recovered/Resolved]
  - Cytokine release syndrome [Recovered/Resolved]
  - Febrile neutropenia [Recovered/Resolved]
  - Rhinovirus infection [Not Recovered/Not Resolved]

NARRATIVE: CASE EVENT DATE: 20141008
